FAERS Safety Report 6192162-3 (Version None)
Quarter: 2009Q2

REPORT INFORMATION
  Report Type: 
  Country: None (occurrence: None)
  Receive Date: 20090515
  Receipt Date: 20090506
  Transmission Date: 20091009
  Serious: Yes (Other)
  Sender: FDA-Public Use
  Company Number: PHHY2009ES18497

PATIENT
  Sex: Male

DRUGS (2)
  1. EVEROLIMUS [Suspect]
     Indication: HEPATIC NEOPLASM MALIGNANT RECURRENT
  2. NEXAVAR [Suspect]
     Indication: HEPATIC NEOPLASM MALIGNANT RECURRENT
     Route: 048

REACTIONS (2)
  - CARDIAC FAILURE [None]
  - PULMONARY OEDEMA [None]
